FAERS Safety Report 6080946-1 (Version None)
Quarter: 2009Q1

REPORT INFORMATION
  Report Type: 
  Country: None (occurrence: None)
  Receive Date: 20090217
  Receipt Date: 20090214
  Transmission Date: 20090719
  Serious: Yes (Hospitalization, Other)
  Sender: FDA-Public Use
  Company Number: JP-B.I. PHARMACEUTICALS,INC./RIDGEFIELD-2008-BP-18995NB

PATIENT
  Sex: Male
  Weight: 77.5 kg

DRUGS (6)
  1. MICARDIS [Suspect]
     Indication: HYPERTENSION
     Dosage: 80MG
     Route: 048
     Dates: start: 20060427
  2. TAGAMET [Concomitant]
     Indication: GASTRITIS
     Dosage: 400MG
     Route: 048
     Dates: start: 20020904
  3. KELNAC [Concomitant]
     Indication: GASTRITIS
     Dosage: 240MG
     Route: 048
     Dates: start: 20020904
  4. ATELEC [Concomitant]
     Indication: HYPERTENSION
     Dosage: 10MG
     Route: 048
     Dates: start: 20060511
  5. BASEN [Concomitant]
     Dosage: .6MG
     Route: 048
  6. AMARYL [Concomitant]
     Dosage: 2MG
     Route: 048

REACTIONS (2)
  - DIABETES MELLITUS [None]
  - GASTRIC CANCER [None]
